FAERS Safety Report 7628774-7 (Version None)
Quarter: 2011Q3

REPORT INFORMATION
  Report Type: 
  Country: None (occurrence: None)
  Receive Date: 20110722
  Receipt Date: 20110323
  Transmission Date: 20111222
  Serious: No
  Sender: FDA-Public Use
  Company Number: US-BAYER-2011-025368

PATIENT
  Sex: Female

DRUGS (8)
  1. BETASERON [Suspect]
     Indication: PRODUCT USED FOR UNKNOWN INDICATION
     Dosage: 0.25 MG, QOD
     Route: 058
  2. VITAMIN D [Concomitant]
  3. BETASERON [Suspect]
     Dosage: 0.75 ML, QOD
     Route: 058
  4. BETASERON [Suspect]
  5. FISH OIL [Concomitant]
  6. EVENING PRIMROSE OIL [Concomitant]
  7. WOMENS ULTRA MEGA [Concomitant]
     Dosage: ONE TABLET, QD
  8. COQ10 [Concomitant]

REACTIONS (4)
  - INJECTION SITE PAIN [None]
  - WHITE BLOOD CELL COUNT DECREASED [None]
  - INJECTION SITE ERYTHEMA [None]
  - INJECTION SITE DISCOMFORT [None]
